FAERS Safety Report 10065192 (Version 1)
Quarter: 2014Q1

REPORT INFORMATION
  Report Type: Spontaneous
  Country: US (occurrence: None)
  Receive Date: 20140328
  Receipt Date: 20140328
  Transmission Date: 20141002
  Serious: No
  Sender: FDA-Public Use
  Company Number: CABO-14003979

PATIENT
  Age: 74 Year
  Sex: 0

DRUGS (1)
  1. COMETRIQ (CABOZANTINIB) CAPSULE [Suspect]
     Indication: MALIGNANT NEOPLASM OF SPINAL CORD
     Route: 048
     Dates: start: 20140110, end: 20140205

REACTIONS (10)
  - Cheilitis [None]
  - Dry mouth [None]
  - Oral pain [None]
  - Asthenia [None]
  - Diarrhoea [None]
  - Mouth ulceration [None]
  - Glossitis [None]
  - Dysphagia [None]
  - Off label use [None]
  - Fatigue [None]
